FAERS Safety Report 7657407-9 (Version None)
Quarter: 2011Q3

REPORT INFORMATION
  Report Type: 
  Country: None (occurrence: None)
  Receive Date: 20110804
  Receipt Date: 20110726
  Transmission Date: 20111222
  Serious: Yes (Other)
  Sender: FDA-Public Use
  Company Number: US-MYLANLABS-2011S1015637

PATIENT
  Sex: Female

DRUGS (3)
  1. ALENDRONATE SODIUM [Suspect]
     Indication: OSTEOPOROSIS
  2. ACTONEL [Suspect]
     Indication: OSTEOPOROSIS
     Dates: start: 20060401, end: 20081201
  3. FOSAMAX [Suspect]
     Indication: OSTEOPOROSIS
     Dates: end: 20101101

REACTIONS (2)
  - FEMUR FRACTURE [None]
  - BONE DISORDER [None]
